FAERS Safety Report 10744462 (Version 1)
Quarter: 2015Q1

REPORT INFORMATION
  Report Type: Spontaneous
  Country: US (occurrence: None)
  Receive Date: 20150126
  Receipt Date: 20150126
  Transmission Date: 20150721
  Serious: No
  Sender: FDA-Public Use
  Company Number: None

PATIENT
  Age: 57 Year
  Sex: Female
  Weight: 85.73 kg

DRUGS (1)
  1. QSYMIA [Suspect]
     Active Substance: PHENTERMINE HYDROCHLORIDE\TOPIRAMATE
     Indication: WEIGHT CONTROL
     Route: 048
     Dates: start: 20131228, end: 20141215

REACTIONS (7)
  - Dysgeusia [None]
  - Mental impairment [None]
  - Dysphonia [None]
  - Tinnitus [None]
  - Dizziness postural [None]
  - Irritability [None]
  - Laryngitis [None]
